FAERS Safety Report 21930752 (Version 1)
Quarter: 2023Q1

REPORT INFORMATION
  Report Type: Spontaneous
  Country: US (occurrence: None)
  Receive Date: 20230130
  Receipt Date: 20230130
  Transmission Date: 20230417
  Serious: Yes (Other)
  Sender: FDA-Public Use
  Company Number: None

PATIENT
  Sex: Female
  Weight: 74.84 kg

DRUGS (2)
  1. BUPROPION [Suspect]
     Active Substance: BUPROPION
     Indication: Major depression
     Dosage: FREQUENCY : DAILY;  WELLBUTRIN 150 MG XL DAILY?
     Route: 048
     Dates: start: 20140123
  2. APLENZIN [Suspect]
     Active Substance: BUPROPION HYDROBROMIDE
     Indication: Major depression
     Dates: start: 20151001

REACTIONS (2)
  - Depression [None]
  - Product substitution issue [None]
